FAERS Safety Report 13567418 (Version 4)
Quarter: 2023Q1

REPORT INFORMATION
  Report Type: Spontaneous
  Country: US (occurrence: US)
  Receive Date: 20170522
  Receipt Date: 20230105
  Transmission Date: 20230417
  Serious: Yes (Other)
  Sender: FDA-Public Use
  Company Number: US-PFIZER INC-2017215765

PATIENT
  Age: 64 Year
  Sex: Female

DRUGS (2)
  1. XELJANZ XR [Suspect]
     Active Substance: TOFACITINIB CITRATE
     Indication: Rheumatoid arthritis
     Dosage: 11 MG, DAILY
     Route: 048
  2. XELJANZ XR [Suspect]
     Active Substance: TOFACITINIB CITRATE
     Dosage: 11 MG, DAILY
     Route: 048
     Dates: start: 201905

REACTIONS (12)
  - Spinal operation [Unknown]
  - Rash [Recovered/Resolved]
  - Oral mucosal eruption [Unknown]
  - Musculoskeletal stiffness [Recovered/Resolved]
  - Pain [Recovering/Resolving]
  - Inflammation [Unknown]
  - Bacterial infection [Unknown]
  - Rash erythematous [Recovered/Resolved]
  - Joint swelling [Unknown]
  - Peripheral swelling [Unknown]
  - Arthralgia [Unknown]
  - Pain in extremity [Unknown]

NARRATIVE: CASE EVENT DATE: 20190501
